FAERS Safety Report 11855158 (Version 2)
Quarter: 2015Q4

REPORT INFORMATION
  Report Type: Spontaneous
  Country: IN (occurrence: IN)
  Receive Date: 20151221
  Receipt Date: 20151221
  Transmission Date: 20160305
  Serious: Yes (Disabling, Other)
  Sender: FDA-Public Use
  Company Number: IN-ACTAVIS-2015-13954

PATIENT
  Age: 13 Year
  Sex: Female

DRUGS (3)
  1. EPINEPHRINE. [Suspect]
     Active Substance: EPINEPHRINE
     Indication: BONE GIANT CELL TUMOUR BENIGN
     Dosage: UNK
     Route: 026
  2. LIDOCAINE HYDROCHLORIDE (WATSON LABORATORIES) [Suspect]
     Active Substance: LIDOCAINE HYDROCHLORIDE
     Indication: LOCAL ANAESTHESIA
     Dosage: UNK
     Route: 026
  3. TRIAMCINOLONE ACETONIDE (AMALLC) [Suspect]
     Active Substance: TRIAMCINOLONE ACETONIDE
     Indication: BONE GIANT CELL TUMOUR BENIGN
     Dosage: 10 MG, UNKNOWN
     Route: 026

REACTIONS (4)
  - Hypertension [Recovered/Resolved]
  - Incorrect route of drug administration [Recovered/Resolved with Sequelae]
  - Retinal artery occlusion [Recovered/Resolved with Sequelae]
  - Tachycardia [Recovered/Resolved]
